FAERS Safety Report 25262106 (Version 2)
Quarter: 2025Q2

REPORT INFORMATION
  Report Type: Spontaneous
  Country: US (occurrence: US)
  Receive Date: 20250502
  Receipt Date: 20250509
  Transmission Date: 20250716
  Serious: No
  Sender: Kenvue
  Company Number: US-KENVUE-20250407996

PATIENT
  Sex: Male

DRUGS (5)
  1. IBUPROFEN [Suspect]
     Active Substance: IBUPROFEN
     Indication: Arthralgia
     Route: 065
     Dates: start: 2024
  2. ORGOVYX [Concomitant]
     Active Substance: RELUGOLIX
     Indication: Product used for unknown indication
     Route: 065
  3. ERLEADA [Concomitant]
     Active Substance: APALUTAMIDE
     Indication: Prostate cancer
     Route: 048
     Dates: start: 20240830
  4. CALCIUM [Concomitant]
     Active Substance: CALCIUM
     Indication: Arthralgia
     Route: 065
     Dates: start: 2024
  5. CALCIUM [Concomitant]
     Active Substance: CALCIUM
     Indication: Pain in extremity

REACTIONS (1)
  - Therapeutic product effect incomplete [Unknown]
